FAERS Safety Report 6173190-0 (Version None)
Quarter: 2009Q2

REPORT INFORMATION
  Report Type: 
  Country: None (occurrence: None)
  Receive Date: 20090428
  Receipt Date: 20090415
  Transmission Date: 20091009
  Serious: Yes (Hospitalization)
  Sender: FDA-Public Use
  Company Number: 2009AL002205

PATIENT
  Age: 11 Year
  Sex: Male

DRUGS (1)
  1. FEVERALL [Suspect]
     Indication: NASOPHARYNGITIS
     Dosage: 500 MG; Q6H
     Route: 054

REACTIONS (9)
  - AMINO ACID LEVEL DECREASED [None]
  - AMINO ACID METABOLISM DISORDER [None]
  - CONVULSION [None]
  - HEPATIC FAILURE [None]
  - KETOSIS [None]
  - METABOLIC ACIDOSIS [None]
  - PYREXIA [None]
  - RENAL IMPAIRMENT [None]
  - VOMITING [None]
